FAERS Safety Report 23404062 (Version 1)
Quarter: 2024Q1

REPORT INFORMATION
  Report Type: Spontaneous
  Country: TR (occurrence: TR)
  Receive Date: 20240116
  Receipt Date: 20240116
  Transmission Date: 20240410
  Serious: Yes (Hospitalization, Other)
  Sender: FDA-Public Use
  Company Number: TR-Korea IPSEN-2024-00436

PATIENT
  Age: 50 Year
  Sex: Female

DRUGS (2)
  1. DYSPORT [Suspect]
     Active Substance: ABOBOTULINUMTOXINA
     Indication: Skin cosmetic procedure
     Route: 065
     Dates: start: 20220330, end: 20220330
  2. DYSPORT [Suspect]
     Active Substance: ABOBOTULINUMTOXINA
     Indication: Off label use

REACTIONS (9)
  - Neuromuscular toxicity [Unknown]
  - Neuropathic muscular atrophy [Unknown]
  - Diarrhoea [Unknown]
  - Pain in jaw [Unknown]
  - Erythema [Unknown]
  - Spinal stenosis [Unknown]
  - Neck pain [Unknown]
  - Muscle atrophy [Unknown]
  - Off label use [Unknown]

NARRATIVE: CASE EVENT DATE: 20220101
